FAERS Safety Report 11749908 (Version 2)
Quarter: 2015Q4

REPORT INFORMATION
  Report Type: Spontaneous
  Country: CL (occurrence: CL)
  Receive Date: 20151118
  Receipt Date: 20151228
  Transmission Date: 20160304
  Serious: Yes (Hospitalization, Other)
  Sender: FDA-Public Use
  Company Number: CL-PFIZER INC-2015377915

PATIENT
  Age: 72 Year
  Sex: Female

DRUGS (2)
  1. NEXIUM [Concomitant]
     Active Substance: ESOMEPRAZOLE MAGNESIUM
     Indication: PROPHYLAXIS
  2. SUTENT [Suspect]
     Active Substance: SUNITINIB MALATE
     Indication: RENAL CANCER
     Dosage: 50 MG, DAILY (ON 28 DAYS, OFF 14 DAYS)
     Route: 048
     Dates: start: 201505

REACTIONS (10)
  - Pain in extremity [Recovered/Resolved]
  - Hypothermia [Recovered/Resolved]
  - Red blood cell count decreased [Recovering/Resolving]
  - Stomatitis [Recovered/Resolved]
  - Skin discolouration [Recovered/Resolved]
  - Immunosuppression [Recovered/Resolved]
  - Eye swelling [Recovered/Resolved]
  - Memory impairment [Recovered/Resolved]
  - Nausea [Recovered/Resolved]
  - Hypothyroidism [Not Recovered/Not Resolved]

NARRATIVE: CASE EVENT DATE: 201511
